FAERS Safety Report 9760215 (Version 1)
Quarter: 2013Q4

REPORT INFORMATION
  Report Type: Spontaneous
  Country: US (occurrence: US)
  Receive Date: 20131216
  Receipt Date: 20131216
  Transmission Date: 20140711
  Serious: No
  Sender: FDA-Public Use
  Company Number: US-PFIZER INC-2013358972

PATIENT
  Age: 82 Year
  Sex: Female
  Weight: 71.2 kg

DRUGS (10)
  1. LYRICA [Suspect]
     Indication: FIBROMYALGIA
     Dosage: 100 MG, 3X/DAY
  2. LYRICA [Suspect]
     Indication: PAIN IN EXTREMITY
  3. LYRICA [Suspect]
     Indication: ARTHRALGIA
  4. METOPROLOL TARTRATE [Concomitant]
     Dosage: 25 MG, 1X/DAY
  5. PLAVIX [Concomitant]
     Dosage: 75 MG, 1X/DAY
  6. OMEPRAZOLE [Concomitant]
     Dosage: 20 MG, 2X/DAY
  7. GEMFIBROZIL [Concomitant]
     Dosage: 600 MG, 2X/DAY
  8. MECLIZINE [Concomitant]
     Dosage: 25 MG, 2X/DAY
  9. LEVOTHYROXINE [Concomitant]
     Dosage: 0.05 MG, 1X/DAY
  10. HYDROCHLOROTHIAZIDE WITH TRIAMTERENE [Concomitant]
     Dosage: UNK, 1X/DAY

REACTIONS (1)
  - Drug ineffective [Unknown]
